FAERS Safety Report 7934207-3 (Version None)
Quarter: 2011Q4

REPORT INFORMATION
  Report Type: 
  Country: None (occurrence: None)
  Receive Date: 20111122
  Receipt Date: 20111118
  Transmission Date: 20120403
  Serious: Yes (Other)
  Sender: FDA-Public Use
  Company Number: US-PFIZER INC-2011283369

PATIENT
  Sex: Male
  Weight: 68.934 kg

DRUGS (7)
  1. SYNTHROID [Concomitant]
     Dosage: 88 UG, DAILY
  2. FOLIC ACID [Concomitant]
     Dosage: 1 MG, DAILY
  3. PHENOBARBITAL [Concomitant]
     Dosage: TWO TABLETS OF 264.8 MG, 2X/DAY
  4. LIPITOR [Suspect]
     Indication: MYOCARDIAL INFARCTION
     Dosage: 10 MG, DAILY
  5. ROXICET [Concomitant]
     Dosage: 5/325 MG, 3X/DAY
  6. LIPITOR [Suspect]
     Indication: BLOOD CHOLESTEROL INCREASED
     Dosage: 20 MG, DAILY
  7. DIGOXIN [Concomitant]
     Dosage: 125 UG, DAILY

REACTIONS (3)
  - HAEMATOPOIETIC NEOPLASM [None]
  - GASTROSTOMY TUBE INSERTION [None]
  - NEUROPATHY PERIPHERAL [None]
